FAERS Safety Report 20349890 (Version 1)
Quarter: 2022Q1

REPORT INFORMATION
  Report Type: Spontaneous
  Country: BH (occurrence: BH)
  Receive Date: 20220119
  Receipt Date: 20220119
  Transmission Date: 20220423
  Serious: Yes (Death, Other)
  Sender: FDA-Public Use
  Company Number: BH-SUN PHARMACEUTICAL INDUSTRIES LTD-2022R1-323511

PATIENT
  Age: 62 Year
  Sex: Female

DRUGS (4)
  1. ASPIRIN [Suspect]
     Active Substance: ASPIRIN
     Indication: Endocarditis noninfective
     Dosage: UNK
     Route: 065
  2. ASPIRIN [Suspect]
     Active Substance: ASPIRIN
     Indication: Embolism
  3. ARGATROBAN [Suspect]
     Active Substance: ARGATROBAN
     Indication: Endocarditis noninfective
     Dosage: UNK
     Route: 065
  4. ARGATROBAN [Suspect]
     Active Substance: ARGATROBAN
     Indication: Embolism

REACTIONS (2)
  - Condition aggravated [Fatal]
  - Pulmonary embolism [Fatal]
